FAERS Safety Report 8483810 (Version 3)
Quarter: 2017Q3

REPORT INFORMATION
  Report Type: Spontaneous
  Country: TH (occurrence: TH)
  Receive Date: 20120329
  Receipt Date: 20170920
  Transmission Date: 20171128
  Serious: Yes (Other)
  Sender: FDA-Public Use
  Company Number: TH-ASTRAZENECA-2012SE18915

PATIENT
  Age: 77 Year
  Sex: Male

DRUGS (6)
  1. MEROPENEM. [Interacting]
     Active Substance: MEROPENEM
     Indication: PYREXIA
     Dosage: 500.0MG UNKNOWN
     Route: 042
  2. TOPIRAMATE. [Concomitant]
     Active Substance: TOPIRAMATE
     Indication: SEIZURE
  3. TOPIRAMATE. [Concomitant]
     Active Substance: TOPIRAMATE
     Indication: SEIZURE
  4. MEROPENEM. [Suspect]
     Active Substance: MEROPENEM
     Indication: PYREXIA
     Dosage: 1.0MG UNKNOWN
     Route: 042
  5. DIVALPROEX [Interacting]
     Active Substance: DIVALPROEX SODIUM
     Indication: SEIZURE
     Route: 048
  6. DIVALPROEX [Interacting]
     Active Substance: DIVALPROEX SODIUM
     Indication: SEIZURE
     Route: 042

REACTIONS (3)
  - Drug level decreased [Recovered/Resolved]
  - Drug interaction [Recovered/Resolved]
  - Seizure [Recovered/Resolved]
